FAERS Safety Report 21994374 (Version 1)
Quarter: 2023Q1

REPORT INFORMATION
  Report Type: Spontaneous
  Country: US (occurrence: US)
  Receive Date: 20230215
  Receipt Date: 20230215
  Transmission Date: 20230418
  Serious: Yes (Other)
  Sender: FDA-Public Use
  Company Number: US-MYLANLABS-2023M1015506

PATIENT
  Age: 8 Decade
  Sex: Female

DRUGS (1)
  1. ZOLEDRONIC ACID [Suspect]
     Active Substance: ZOLEDRONIC ACID
     Indication: Osteopetrosis
     Dosage: UNK; RECEIVED INFUSION
     Route: 042

REACTIONS (2)
  - Arthralgia [Recovered/Resolved]
  - Inflammation [Recovered/Resolved]
